FAERS Safety Report 21054352 (Version 3)
Quarter: 2025Q2

REPORT INFORMATION
  Report Type: Report from Study
  Country: FR (occurrence: FR)
  Receive Date: 20220707
  Receipt Date: 20250408
  Transmission Date: 20250717
  Serious: Yes (Hospitalization)
  Sender: MYLAN
  Company Number: FR-BAUSCH-BL-2022-012398

PATIENT
  Age: 89 Year
  Sex: Male
  Weight: 74.6 kg

DRUGS (132)
  1. DEXAMETHASONE [Suspect]
     Active Substance: DEXAMETHASONE
     Indication: Plasma cell myeloma
     Dosage: 20 MG, QD
     Dates: start: 20220120
  2. DEXAMETHASONE [Suspect]
     Active Substance: DEXAMETHASONE
     Dosage: 20 MG, QD
     Dates: start: 20220120
  3. DEXAMETHASONE [Suspect]
     Active Substance: DEXAMETHASONE
     Dosage: 20 MG, QD
     Route: 048
     Dates: start: 20220120
  4. DEXAMETHASONE [Suspect]
     Active Substance: DEXAMETHASONE
     Dosage: 20 MG, QD
     Route: 048
     Dates: start: 20220120
  5. DEXAMETHASONE [Suspect]
     Active Substance: DEXAMETHASONE
  6. DEXAMETHASONE [Suspect]
     Active Substance: DEXAMETHASONE
  7. DEXAMETHASONE [Suspect]
     Active Substance: DEXAMETHASONE
     Route: 048
  8. DEXAMETHASONE [Suspect]
     Active Substance: DEXAMETHASONE
     Route: 048
  9. ESCITALOPRAM [Suspect]
     Active Substance: ESCITALOPRAM OXALATE
     Indication: Anxiety
  10. ESCITALOPRAM [Suspect]
     Active Substance: ESCITALOPRAM OXALATE
  11. ESCITALOPRAM [Suspect]
     Active Substance: ESCITALOPRAM OXALATE
     Route: 065
  12. ESCITALOPRAM [Suspect]
     Active Substance: ESCITALOPRAM OXALATE
     Route: 065
  13. ESCITALOPRAM [Suspect]
     Active Substance: ESCITALOPRAM OXALATE
  14. ESCITALOPRAM [Suspect]
     Active Substance: ESCITALOPRAM OXALATE
  15. POMALIDOMIDE [Suspect]
     Active Substance: POMALIDOMIDE
     Indication: Plasma cell myeloma
     Dosage: 4 MG, QD
     Route: 065
     Dates: start: 20220120
  16. POMALIDOMIDE [Suspect]
     Active Substance: POMALIDOMIDE
     Indication: Plasma cell myeloma
     Dosage: 4 MG, QD
     Route: 065
     Dates: start: 20220120
  17. POMALIDOMIDE [Suspect]
     Active Substance: POMALIDOMIDE
     Dosage: 4 MG, QD
     Route: 065
     Dates: start: 20220120
  18. POMALIDOMIDE [Suspect]
     Active Substance: POMALIDOMIDE
     Dosage: 4 MG, QD
     Route: 065
     Dates: start: 20220120
  19. POMALIDOMIDE [Suspect]
     Active Substance: POMALIDOMIDE
  20. POMALIDOMIDE [Suspect]
     Active Substance: POMALIDOMIDE
  21. POMALIDOMIDE [Suspect]
     Active Substance: POMALIDOMIDE
     Route: 065
  22. POMALIDOMIDE [Suspect]
     Active Substance: POMALIDOMIDE
     Route: 065
  23. ISATUXIMAB [Suspect]
     Active Substance: ISATUXIMAB
     Indication: Plasma cell myeloma
     Dosage: 10 MILLIGRAM/KILOGRAM, QW
  24. ISATUXIMAB [Suspect]
     Active Substance: ISATUXIMAB
     Indication: Plasma cell myeloma
     Dosage: 10 MILLIGRAM/KILOGRAM, QW
     Route: 065
  25. ISATUXIMAB [Suspect]
     Active Substance: ISATUXIMAB
     Dosage: 10 MILLIGRAM/KILOGRAM, QW
     Route: 065
  26. ISATUXIMAB [Suspect]
     Active Substance: ISATUXIMAB
     Dosage: 10 MILLIGRAM/KILOGRAM, QW
  27. ISATUXIMAB [Suspect]
     Active Substance: ISATUXIMAB
     Route: 065
  28. ISATUXIMAB [Suspect]
     Active Substance: ISATUXIMAB
     Route: 065
  29. ISATUXIMAB [Suspect]
     Active Substance: ISATUXIMAB
  30. ISATUXIMAB [Suspect]
     Active Substance: ISATUXIMAB
  31. ISATUXIMAB [Suspect]
     Active Substance: ISATUXIMAB
     Dosage: 10 MG/KG, QW
     Route: 065
     Dates: start: 20220120
  32. ISATUXIMAB [Suspect]
     Active Substance: ISATUXIMAB
     Dosage: 10 MG/KG, QW
     Route: 065
     Dates: start: 20220120
  33. ISATUXIMAB [Suspect]
     Active Substance: ISATUXIMAB
     Dosage: 10 MG/KG, QW
     Route: 065
     Dates: start: 20220120
  34. ISATUXIMAB [Suspect]
     Active Substance: ISATUXIMAB
     Dosage: 10 MG/KG, QW
     Route: 065
     Dates: start: 20220120
  35. AUGMENTIN [Concomitant]
     Active Substance: AMOXICILLIN\CLAVULANATE POTASSIUM
     Indication: Product used for unknown indication
     Dates: start: 20220325, end: 20220330
  36. AUGMENTIN [Concomitant]
     Active Substance: AMOXICILLIN\CLAVULANATE POTASSIUM
     Route: 065
     Dates: start: 20220325, end: 20220330
  37. AUGMENTIN [Concomitant]
     Active Substance: AMOXICILLIN\CLAVULANATE POTASSIUM
     Route: 065
     Dates: start: 20220325, end: 20220330
  38. AUGMENTIN [Concomitant]
     Active Substance: AMOXICILLIN\CLAVULANATE POTASSIUM
     Dates: start: 20220325, end: 20220330
  39. KARDEGIC [Concomitant]
     Active Substance: ASPIRIN DL-LYSINE
     Indication: Product used for unknown indication
  40. KARDEGIC [Concomitant]
     Active Substance: ASPIRIN DL-LYSINE
     Indication: Product used for unknown indication
     Route: 065
  41. KARDEGIC [Concomitant]
     Active Substance: ASPIRIN DL-LYSINE
     Route: 065
  42. KARDEGIC [Concomitant]
     Active Substance: ASPIRIN DL-LYSINE
  43. GENTAMICIN [Concomitant]
     Active Substance: GENTAMICIN
     Indication: Product used for unknown indication
     Dates: start: 20220404, end: 20220414
  44. GENTAMICIN [Concomitant]
     Active Substance: GENTAMICIN
     Route: 065
     Dates: start: 20220404, end: 20220414
  45. GENTAMICIN [Concomitant]
     Active Substance: GENTAMICIN
     Route: 065
     Dates: start: 20220404, end: 20220414
  46. GENTAMICIN [Concomitant]
     Active Substance: GENTAMICIN
     Dates: start: 20220404, end: 20220414
  47. IPRATROPIUM [Concomitant]
     Active Substance: IPRATROPIUM
     Indication: Product used for unknown indication
     Dates: start: 20220330, end: 20220406
  48. IPRATROPIUM [Concomitant]
     Active Substance: IPRATROPIUM
     Indication: Product used for unknown indication
     Route: 065
     Dates: start: 20220330, end: 20220406
  49. IPRATROPIUM [Concomitant]
     Active Substance: IPRATROPIUM
     Route: 065
     Dates: start: 20220330, end: 20220406
  50. IPRATROPIUM [Concomitant]
     Active Substance: IPRATROPIUM
     Dates: start: 20220330, end: 20220406
  51. POTASSIUM CHLORIDE [Concomitant]
     Active Substance: POTASSIUM CHLORIDE
     Indication: Product used for unknown indication
  52. POTASSIUM CHLORIDE [Concomitant]
     Active Substance: POTASSIUM CHLORIDE
     Indication: Product used for unknown indication
     Route: 065
  53. POTASSIUM CHLORIDE [Concomitant]
     Active Substance: POTASSIUM CHLORIDE
     Route: 065
  54. POTASSIUM CHLORIDE [Concomitant]
     Active Substance: POTASSIUM CHLORIDE
  55. FUROSEMIDE [Concomitant]
     Active Substance: FUROSEMIDE
     Indication: Hypertension
  56. FUROSEMIDE [Concomitant]
     Active Substance: FUROSEMIDE
     Indication: Hypertension
     Route: 065
  57. FUROSEMIDE [Concomitant]
     Active Substance: FUROSEMIDE
     Route: 065
  58. FUROSEMIDE [Concomitant]
     Active Substance: FUROSEMIDE
  59. PANTOPRAZOLE [Concomitant]
     Active Substance: PANTOPRAZOLE
     Indication: Gastrooesophageal reflux prophylaxis
  60. PANTOPRAZOLE [Concomitant]
     Active Substance: PANTOPRAZOLE
     Indication: Gastrooesophageal reflux prophylaxis
  61. PANTOPRAZOLE [Concomitant]
     Active Substance: PANTOPRAZOLE
     Route: 065
  62. PANTOPRAZOLE [Concomitant]
     Active Substance: PANTOPRAZOLE
     Route: 065
  63. PANTOPRAZOLE [Concomitant]
     Active Substance: PANTOPRAZOLE
  64. PANTOPRAZOLE [Concomitant]
     Active Substance: PANTOPRAZOLE
  65. NITROGLYCERIN [Concomitant]
     Active Substance: NITROGLYCERIN
     Indication: Product used for unknown indication
  66. NITROGLYCERIN [Concomitant]
     Active Substance: NITROGLYCERIN
     Indication: Product used for unknown indication
     Route: 065
  67. NITROGLYCERIN [Concomitant]
     Active Substance: NITROGLYCERIN
     Route: 065
  68. NITROGLYCERIN [Concomitant]
     Active Substance: NITROGLYCERIN
  69. POLARAMINE [Concomitant]
     Active Substance: DEXCHLORPHENIRAMINE MALEATE
     Indication: Prophylaxis
  70. POLARAMINE [Concomitant]
     Active Substance: DEXCHLORPHENIRAMINE MALEATE
     Route: 065
  71. POLARAMINE [Concomitant]
     Active Substance: DEXCHLORPHENIRAMINE MALEATE
     Route: 065
  72. POLARAMINE [Concomitant]
     Active Substance: DEXCHLORPHENIRAMINE MALEATE
  73. FAMOTIDINE [Concomitant]
     Active Substance: FAMOTIDINE
     Indication: Prophylaxis
  74. FAMOTIDINE [Concomitant]
     Active Substance: FAMOTIDINE
     Route: 065
  75. FAMOTIDINE [Concomitant]
     Active Substance: FAMOTIDINE
     Route: 065
  76. FAMOTIDINE [Concomitant]
     Active Substance: FAMOTIDINE
  77. FUNGIZONE [Concomitant]
     Active Substance: AMPHOTERICIN B
     Indication: Product used for unknown indication
     Dates: start: 20220325, end: 20220329
  78. FUNGIZONE [Concomitant]
     Active Substance: AMPHOTERICIN B
     Indication: Product used for unknown indication
     Route: 065
     Dates: start: 20220325, end: 20220329
  79. FUNGIZONE [Concomitant]
     Active Substance: AMPHOTERICIN B
     Route: 065
     Dates: start: 20220325, end: 20220329
  80. FUNGIZONE [Concomitant]
     Active Substance: AMPHOTERICIN B
     Dates: start: 20220325, end: 20220329
  81. BISOPROLOL [Concomitant]
     Active Substance: BISOPROLOL
     Indication: Aortic valve disease
  82. BISOPROLOL [Concomitant]
     Active Substance: BISOPROLOL
     Route: 065
  83. BISOPROLOL [Concomitant]
     Active Substance: BISOPROLOL
     Route: 065
  84. BISOPROLOL [Concomitant]
     Active Substance: BISOPROLOL
  85. CYANOCOBALAMIN [Concomitant]
     Active Substance: CYANOCOBALAMIN
     Indication: Vitamin B12 deficiency
     Dates: start: 20220115, end: 20220329
  86. CYANOCOBALAMIN [Concomitant]
     Active Substance: CYANOCOBALAMIN
     Route: 065
     Dates: start: 20220115, end: 20220329
  87. CYANOCOBALAMIN [Concomitant]
     Active Substance: CYANOCOBALAMIN
     Route: 065
     Dates: start: 20220115, end: 20220329
  88. CYANOCOBALAMIN [Concomitant]
     Active Substance: CYANOCOBALAMIN
     Dates: start: 20220115, end: 20220329
  89. DAPTOMYCIN [Concomitant]
     Active Substance: DAPTOMYCIN
     Indication: Product used for unknown indication
     Dates: start: 20220403, end: 20220414
  90. DAPTOMYCIN [Concomitant]
     Active Substance: DAPTOMYCIN
     Route: 065
     Dates: start: 20220403, end: 20220414
  91. DAPTOMYCIN [Concomitant]
     Active Substance: DAPTOMYCIN
     Route: 065
     Dates: start: 20220403, end: 20220414
  92. DAPTOMYCIN [Concomitant]
     Active Substance: DAPTOMYCIN
     Dates: start: 20220403, end: 20220414
  93. CEFTRIAXONE [Concomitant]
     Active Substance: CEFTRIAXONE
     Indication: Product used for unknown indication
     Dates: start: 20220330, end: 20220330
  94. CEFTRIAXONE [Concomitant]
     Active Substance: CEFTRIAXONE
     Route: 065
     Dates: start: 20220330, end: 20220330
  95. CEFTRIAXONE [Concomitant]
     Active Substance: CEFTRIAXONE
     Route: 065
     Dates: start: 20220330, end: 20220330
  96. CEFTRIAXONE [Concomitant]
     Active Substance: CEFTRIAXONE
     Dates: start: 20220330, end: 20220330
  97. FILGRASTIM [Concomitant]
     Active Substance: FILGRASTIM
     Indication: Product used for unknown indication
  98. FILGRASTIM [Concomitant]
     Active Substance: FILGRASTIM
     Indication: Product used for unknown indication
     Route: 065
  99. FILGRASTIM [Concomitant]
     Active Substance: FILGRASTIM
     Route: 065
  100. FILGRASTIM [Concomitant]
     Active Substance: FILGRASTIM
  101. VALACYCLOVIR HYDROCHLORIDE [Concomitant]
     Active Substance: VALACYCLOVIR HYDROCHLORIDE
     Indication: Infection prophylaxis
  102. VALACYCLOVIR HYDROCHLORIDE [Concomitant]
     Active Substance: VALACYCLOVIR HYDROCHLORIDE
     Indication: Infection prophylaxis
     Route: 065
  103. VALACYCLOVIR HYDROCHLORIDE [Concomitant]
     Active Substance: VALACYCLOVIR HYDROCHLORIDE
     Route: 065
  104. VALACYCLOVIR HYDROCHLORIDE [Concomitant]
     Active Substance: VALACYCLOVIR HYDROCHLORIDE
  105. ATOVAQUONE [Concomitant]
     Active Substance: ATOVAQUONE
     Indication: Product used for unknown indication
  106. ATOVAQUONE [Concomitant]
     Active Substance: ATOVAQUONE
     Indication: Product used for unknown indication
     Route: 065
  107. ATOVAQUONE [Concomitant]
     Active Substance: ATOVAQUONE
     Route: 065
  108. ATOVAQUONE [Concomitant]
     Active Substance: ATOVAQUONE
  109. NEFOPAM [Concomitant]
     Active Substance: NEFOPAM
     Indication: Bone lesion
     Dates: start: 20220404, end: 20220404
  110. NEFOPAM [Concomitant]
     Active Substance: NEFOPAM
     Indication: Bone lesion
     Route: 065
     Dates: start: 20220404, end: 20220404
  111. NEFOPAM [Concomitant]
     Active Substance: NEFOPAM
     Route: 065
     Dates: start: 20220404, end: 20220404
  112. NEFOPAM [Concomitant]
     Active Substance: NEFOPAM
     Dates: start: 20220404, end: 20220404
  113. VANCOMYCIN [Concomitant]
     Active Substance: VANCOMYCIN
     Indication: Product used for unknown indication
     Dates: start: 20220331, end: 20220403
  114. VANCOMYCIN [Concomitant]
     Active Substance: VANCOMYCIN
     Route: 065
     Dates: start: 20220331, end: 20220403
  115. VANCOMYCIN [Concomitant]
     Active Substance: VANCOMYCIN
     Route: 065
     Dates: start: 20220331, end: 20220403
  116. VANCOMYCIN [Concomitant]
     Active Substance: VANCOMYCIN
     Dates: start: 20220331, end: 20220403
  117. LOVENOX [Concomitant]
     Active Substance: ENOXAPARIN SODIUM
     Indication: Atrial fibrillation
  118. LOVENOX [Concomitant]
     Active Substance: ENOXAPARIN SODIUM
     Route: 065
  119. LOVENOX [Concomitant]
     Active Substance: ENOXAPARIN SODIUM
     Route: 065
  120. LOVENOX [Concomitant]
     Active Substance: ENOXAPARIN SODIUM
  121. ACETAMINOPHEN [Concomitant]
     Active Substance: ACETAMINOPHEN
     Indication: Prophylaxis
  122. ACETAMINOPHEN [Concomitant]
     Active Substance: ACETAMINOPHEN
     Route: 065
  123. ACETAMINOPHEN [Concomitant]
     Active Substance: ACETAMINOPHEN
     Route: 065
  124. ACETAMINOPHEN [Concomitant]
     Active Substance: ACETAMINOPHEN
  125. RETACRIT [Concomitant]
     Active Substance: EPOETIN ALFA-EPBX
     Indication: Anaemia
  126. RETACRIT [Concomitant]
     Active Substance: EPOETIN ALFA-EPBX
     Route: 065
  127. RETACRIT [Concomitant]
     Active Substance: EPOETIN ALFA-EPBX
     Route: 065
  128. RETACRIT [Concomitant]
     Active Substance: EPOETIN ALFA-EPBX
  129. EBASTINE [Concomitant]
     Active Substance: EBASTINE
     Indication: Seasonal allergy
     Dates: start: 20220209, end: 20220329
  130. EBASTINE [Concomitant]
     Active Substance: EBASTINE
     Route: 065
     Dates: start: 20220209, end: 20220329
  131. EBASTINE [Concomitant]
     Active Substance: EBASTINE
     Route: 065
     Dates: start: 20220209, end: 20220329
  132. EBASTINE [Concomitant]
     Active Substance: EBASTINE
     Dates: start: 20220209, end: 20220329

REACTIONS (1)
  - COVID-19 [Recovered/Resolved]

NARRATIVE: CASE EVENT DATE: 20220406
